FAERS Safety Report 7467444-5 (Version None)
Quarter: 2011Q2

REPORT INFORMATION
  Report Type: 
  Country: None (occurrence: None)
  Receive Date: 20110509
  Receipt Date: 20101230
  Transmission Date: 20111010
  Serious: No
  Sender: FDA-Public Use
  Company Number: US-ALEXION-A201001687

PATIENT
  Sex: Female

DRUGS (5)
  1. FOLIC ACID [Concomitant]
     Dosage: 1 MG, QD
     Route: 048
  2. METOPROLOL TARTRATE [Concomitant]
     Dosage: 25 MG, BID
     Route: 048
  3. SOLIRIS [Suspect]
     Indication: PAROXYSMAL NOCTURNAL HAEMOGLOBINURIA
     Dosage: 900 MG, Q2W
     Route: 042
     Dates: start: 20090807
  4. EXJADE [Concomitant]
     Indication: IRON OVERLOAD
     Dosage: 1000 MG, QD
  5. ARANESP [Concomitant]
     Dosage: 1 SHOT, Q3 WEEKS

REACTIONS (3)
  - VIRAL INFECTION [None]
  - HAEMOGLOBIN DECREASED [None]
  - PYREXIA [None]
